FAERS Safety Report 15097258 (Version 2)
Quarter: 2019Q1

REPORT INFORMATION
  Report Type: Spontaneous
  Country: US (occurrence: US)
  Receive Date: 20180702
  Receipt Date: 20190129
  Transmission Date: 20190417
  Serious: Yes (Disabling, Other)
  Sender: FDA-Public Use
  Company Number: US-PFIZER INC-2018259022

PATIENT

DRUGS (4)
  1. ACTHAR [Suspect]
     Active Substance: CORTICOTROPIN
     Dosage: UNK
  2. HUMIRA [Suspect]
     Active Substance: ADALIMUMAB
     Indication: RHEUMATOID ARTHRITIS
     Dosage: UNK
     Route: 058
  3. ORENCIA [Suspect]
     Active Substance: ABATACEPT
     Dosage: UNK
  4. XELJANZ [Suspect]
     Active Substance: TOFACITINIB CITRATE
     Dosage: UNK

REACTIONS (8)
  - Multiple sclerosis [Unknown]
  - Osteonecrosis [Unknown]
  - Dysphonia [Unknown]
  - Drug ineffective [Unknown]
  - Ataxia [Unknown]
  - Secondary progressive multiple sclerosis [Unknown]
  - Rheumatoid arthritis [Unknown]
  - Trigeminal neuralgia [Unknown]
